FAERS Safety Report 17208462 (Version 1)
Quarter: 2019Q4

REPORT INFORMATION
  Report Type: Report from Study
  Country: FR (occurrence: FR)
  Receive Date: 20191227
  Receipt Date: 20191227
  Transmission Date: 20200122
  Serious: Yes (Other)
  Sender: FDA-Public Use
  Company Number: FR-JNJFOC-20191227498

PATIENT
  Age: 21 Year
  Sex: Female

DRUGS (4)
  1. ESKETAMINE [Suspect]
     Active Substance: ESKETAMINE
     Dates: start: 20191216
  2. DULOXETINE ARROW [Concomitant]
     Indication: DEPRESSION
     Dosage: ONGOING; FREQUENCY 1
     Route: 048
     Dates: start: 20191204
  3. VORTIOXETINE. [Concomitant]
     Active Substance: VORTIOXETINE
     Indication: DEPRESSION
     Dates: start: 20191202, end: 20191204
  4. ESKETAMINE [Suspect]
     Active Substance: ESKETAMINE
     Indication: DEPRESSION
     Dates: start: 20191209, end: 20191213

REACTIONS (1)
  - Suicidal ideation [Unknown]
